FAERS Safety Report 7887000-4 (Version None)
Quarter: 2011Q4

REPORT INFORMATION
  Report Type: 
  Country: None (occurrence: None)
  Receive Date: 20111102
  Receipt Date: 20110713
  Transmission Date: 20120403
  Serious: No
  Sender: FDA-Public Use
  Company Number: US-AMGEN-USASP2011035663

PATIENT
  Age: 72 Year
  Sex: Female

DRUGS (2)
  1. PRILOSEC [Concomitant]
  2. ENBREL [Suspect]
     Indication: RHEUMATOID ARTHRITIS
     Dosage: 25 MG, 2 TIMES/WK
     Dates: start: 20090901, end: 20110101

REACTIONS (2)
  - CYSTITIS [None]
  - HYPERSENSITIVITY [None]
